FAERS Safety Report 8775468 (Version 1)
Quarter: 2012Q4

REPORT INFORMATION
  Report Type: Report from Study
  Country: BR (occurrence: BR)
  Receive Date: 20120911
  Receipt Date: 20120911
  Transmission Date: 20130627
  Serious: Yes (Hospitalization, Other)
  Sender: FDA-Public Use
  Company Number: BR-ROCHE-698001

PATIENT
  Age: 32 Year
  Sex: Female
  Weight: 52 kg

DRUGS (11)
  1. MABTHERA [Suspect]
     Indication: SYSTEMIC LUPUS ERYTHEMATOSUS
     Dosage: OTHER INDICATION: RA
     Route: 042
     Dates: start: 20100316, end: 20100316
  2. SALINE [Suspect]
     Indication: PRODUCT USED FOR UNKNOWN INDICATION
     Dosage: SALINE SOLUTION
     Route: 042
     Dates: start: 20100316, end: 20100316
  3. PREDNISONE [Suspect]
     Indication: PRODUCT USED FOR UNKNOWN INDICATION
     Route: 065
  4. DIGOXINE [Concomitant]
     Route: 065
  5. DIURIX [Concomitant]
     Route: 065
  6. FUROSEMIDE [Concomitant]
     Route: 065
  7. SILDENAFIL [Concomitant]
     Route: 065
  8. MAREVAN [Concomitant]
  9. OMEPRAZOLE [Concomitant]
  10. BOSENTAN [Concomitant]
  11. PARACETAMOL [Concomitant]
     Route: 065

REACTIONS (10)
  - Pulmonary embolism [Recovering/Resolving]
  - Pulmonary hypertension [Not Recovered/Not Resolved]
  - Visual acuity reduced [Not Recovered/Not Resolved]
  - Cataract [Not Recovered/Not Resolved]
  - Cardiac failure [Unknown]
  - Drug ineffective [Unknown]
  - Blood pressure increased [Recovered/Resolved]
  - Fluid retention [Unknown]
  - Labile blood pressure [Not Recovered/Not Resolved]
  - Hyperaemia [Recovered/Resolved]
